FAERS Safety Report 9665155 (Version 1)
Quarter: 2013Q4

REPORT INFORMATION
  Report Type: Spontaneous
  Country: FI (occurrence: FI)
  Receive Date: 20131101
  Receipt Date: 20131101
  Transmission Date: 20140711
  Serious: Yes (Other)
  Sender: FDA-Public Use
  Company Number: FI-009507513-1310FIN014156

PATIENT
  Age: 81 Year
  Sex: Female

DRUGS (6)
  1. ALENDRONATE SODIUM [Suspect]
     Indication: OSTEOPOROSIS
     Dosage: 10 MG/DAY
     Route: 048
     Dates: start: 2005, end: 2008
  2. ALENDRONATE SODIUM [Suspect]
     Dosage: WEEKLY DOSE OF 70 MG
     Route: 048
     Dates: start: 2008, end: 2009
  3. BIMATOPROST [Concomitant]
  4. DILTIAZEM HYDROCHLORIDE [Concomitant]
  5. AMILORIDE HYDROCHLORIDE (+) HYDROCHLOROTHIAZIDE [Concomitant]
     Dosage: UNK, PRN
  6. CALCIUM (UNSPECIFIED) (+) VITAMIN D (UNSPECIFIED) [Concomitant]
     Indication: OSTEOPOROSIS

REACTIONS (4)
  - Atypical femur fracture [Recovered/Resolved]
  - Atypical femur fracture [Recovered/Resolved]
  - Intramedullary rod insertion [Recovered/Resolved]
  - Intramedullary rod insertion [Recovered/Resolved]
